FAERS Safety Report 9771370 (Version 1)
Quarter: 2013Q4

REPORT INFORMATION
  Report Type: Spontaneous
  Country: FR (occurrence: FR)
  Receive Date: 20131218
  Receipt Date: 20131218
  Transmission Date: 20140711
  Serious: Yes (Other)
  Sender: FDA-Public Use
  Company Number: FR-ROCHE-1321462

PATIENT
  Age: 73 Year
  Sex: Male

DRUGS (3)
  1. AVASTIN [Suspect]
     Indication: GLIOBLASTOMA
     Dosage: 25 MG/ML
     Route: 041
     Dates: start: 20130701, end: 20131108
  2. MUPHORAN [Suspect]
     Indication: GLIOBLASTOMA
     Route: 041
     Dates: start: 20130701, end: 20131108
  3. TEMODAL [Concomitant]

REACTIONS (2)
  - Pulmonary embolism [Recovering/Resolving]
  - Cholestasis [Recovering/Resolving]
